FAERS Safety Report 15357265 (Version 3)
Quarter: 2018Q4

REPORT INFORMATION
  Report Type: Spontaneous
  Country: US (occurrence: US)
  Receive Date: 20180906
  Receipt Date: 20181029
  Transmission Date: 20190204
  Serious: Yes (Life-Threatening, Hospitalization, Other)
  Sender: FDA-Public Use
  Company Number: US-SA-2018SA240014

PATIENT
  Age: 17 Month
  Sex: Female

DRUGS (12)
  1. HYDROCORTISONE. [Suspect]
     Active Substance: HYDROCORTISONE
     Indication: ACUTE LYMPHOCYTIC LEUKAEMIA
     Route: 037
  2. METHYLPREDNISOLONE. [Suspect]
     Active Substance: METHYLPREDNISOLONE
     Indication: ACUTE LYMPHOCYTIC LEUKAEMIA
  3. ETOPOSIDE. [Suspect]
     Active Substance: ETOPOSIDE
     Indication: ACUTE LYMPHOCYTIC LEUKAEMIA
  4. CYCLOPHOSPHAMIDE. [Suspect]
     Active Substance: CYCLOPHOSPHAMIDE
     Indication: ACUTE LYMPHOCYTIC LEUKAEMIA
  5. VINCRISTINE SULFATE. [Suspect]
     Active Substance: VINCRISTINE SULFATE
     Indication: ACUTE LYMPHOCYTIC LEUKAEMIA
  6. CYTARABINE. [Suspect]
     Active Substance: CYTARABINE
     Indication: ACUTE LYMPHOCYTIC LEUKAEMIA
     Route: 037
  7. METHOTREXATE. [Suspect]
     Active Substance: METHOTREXATE
     Indication: ACUTE LYMPHOCYTIC LEUKAEMIA
     Route: 037
  8. DAUNORUBICIN [Suspect]
     Active Substance: DAUNORUBICIN
     Indication: ACUTE LYMPHOCYTIC LEUKAEMIA
  9. ASPARAGINASE [Suspect]
     Active Substance: ASPARAGINASE
     Indication: ACUTE LYMPHOCYTIC LEUKAEMIA
  10. CYTARABINE. [Suspect]
     Active Substance: CYTARABINE
     Dosage: UNK
     Route: 037
  11. METHOTREXATE. [Suspect]
     Active Substance: METHOTREXATE
     Dosage: AT 21 MONTHS AGE
     Route: 042
  12. LESTAURTINIB [Suspect]
     Active Substance: LESTAURTINIB
     Indication: ACUTE LYMPHOCYTIC LEUKAEMIA

REACTIONS (27)
  - Dermatitis [Recovering/Resolving]
  - Bronchiolitis [Recovering/Resolving]
  - Secondary immunodeficiency [Recovering/Resolving]
  - Rash [Recovering/Resolving]
  - Skin necrosis [Recovering/Resolving]
  - Conjunctivitis bacterial [Recovering/Resolving]
  - Vascular device infection [Recovering/Resolving]
  - Pulmonary oedema [Unknown]
  - Septic shock [Recovering/Resolving]
  - Hypogammaglobulinaemia [Recovering/Resolving]
  - Hypertension [Unknown]
  - Candida infection [Recovering/Resolving]
  - Klebsiella infection [Recovering/Resolving]
  - Staphylococcal sepsis [Recovering/Resolving]
  - Staphylococcal infection [Recovering/Resolving]
  - Erythema multiforme [Recovering/Resolving]
  - Febrile neutropenia [Recovered/Resolved]
  - Otitis externa [Recovering/Resolving]
  - Dermatitis exfoliative generalised [Recovering/Resolving]
  - Hyperkeratosis [Recovering/Resolving]
  - Clostridium difficile colitis [Recovering/Resolving]
  - Feeding intolerance [Recovering/Resolving]
  - Diarrhoea [Recovering/Resolving]
  - Vomiting [Recovering/Resolving]
  - Enterococcal infection [Recovering/Resolving]
  - Lymphopenia [Recovered/Resolved]
  - Corona virus infection [Recovered/Resolved]
